FAERS Safety Report 4450093-0 (Version None)
Quarter: 2004Q3

REPORT INFORMATION
  Report Type: 
  Country: None (occurrence: None)
  Receive Date: 20040910
  Receipt Date: 20040812
  Transmission Date: 20050211
  Serious: Yes (Other)
  Sender: FDA-Public Use
  Company Number: S04-USA-04943-01

PATIENT
  Age: 42 Year
  Sex: Male

DRUGS (5)
  1. LEXAPRO [Suspect]
     Indication: DEPRESSION
     Dosage: 10 MG QD PO
     Route: 048
     Dates: start: 20040721
  2. TOPROL-XL [Concomitant]
  3. ASPIRIN [Concomitant]
  4. PLAVIX [Concomitant]
  5. KLONOPIN [Concomitant]

REACTIONS (4)
  - DRY SKIN [None]
  - HYPOTENSION [None]
  - SOMNOLENCE [None]
  - TONGUE BLISTERING [None]
